FAERS Safety Report 18326341 (Version 5)
Quarter: 2021Q1

REPORT INFORMATION
  Report Type: Report from Study
  Country: CA (occurrence: CA)
  Receive Date: 20200929
  Receipt Date: 20210310
  Transmission Date: 20210419
  Serious: Yes (Other)
  Sender: FDA-Public Use
  Company Number: CA-BAUSCH-BL-2020-009977

PATIENT
  Age: 37 Year
  Sex: Male

DRUGS (3)
  1. SILIQ [Suspect]
     Active Substance: BRODALUMAB
     Indication: PSORIASIS
     Dosage: 210 MG/1.5ML, WEEK 0, 1 AND 2
     Route: 058
     Dates: start: 20200204, end: 202002
  2. SILIQ [Suspect]
     Active Substance: BRODALUMAB
     Dosage: 210 MG/1.5ML
     Route: 058
     Dates: start: 2020, end: 202003
  3. SILIQ [Suspect]
     Active Substance: BRODALUMAB
     Dosage: 210 MG/1.5ML
     Route: 058
     Dates: start: 2020

REACTIONS (12)
  - Adverse event [Not Recovered/Not Resolved]
  - Arthralgia [Not Recovered/Not Resolved]
  - Disease recurrence [Unknown]
  - Gait disturbance [Not Recovered/Not Resolved]
  - Therapy interrupted [Unknown]
  - Insomnia [Unknown]
  - Psoriasis [Unknown]
  - Product dose omission issue [Unknown]
  - Heart rate increased [Unknown]
  - Blood pressure increased [Not Recovered/Not Resolved]
  - Drug ineffective [Unknown]
  - Movement disorder [Not Recovered/Not Resolved]

NARRATIVE: CASE EVENT DATE: 2020
